FAERS Safety Report 9698336 (Version 3)
Quarter: 2014Q1

REPORT INFORMATION
  Report Type: Spontaneous
  Country: US (occurrence: US)
  Receive Date: 20131120
  Receipt Date: 20140110
  Transmission Date: 20141002
  Serious: Yes (Other)
  Sender: FDA-Public Use
  Company Number: US-VERTEX PHARMACEUTICALS INC-2013-010999

PATIENT
  Age: 54 Year
  Sex: Female
  Weight: 72.56 kg

DRUGS (14)
  1. INCIVEK [Suspect]
     Indication: HEPATITIS C
     Dosage: 2 TABS, TID
     Route: 048
     Dates: start: 20131024
  2. INCIVEK [Suspect]
     Dosage: 3 TABS, BID
     Route: 048
  3. RIBASPHERE [Suspect]
     Indication: HEPATITIS C
     Dosage: 3 TABS, BID
     Route: 048
     Dates: start: 20131024
  4. PEGASYS [Suspect]
     Indication: HEPATITIS C
     Dosage: 180 ?G, QW
     Route: 058
     Dates: start: 20131024
  5. STOOL SOFTENER [Concomitant]
     Dosage: 100 MG, QID
  6. LYRICA [Concomitant]
     Dosage: 100 MG, BID
  7. HYDROCODONE/APAP [Concomitant]
     Dosage: 1 DF, PRN
  8. DEXAMETHASONE [Concomitant]
     Dosage: UNK, PRN
  9. DEBACTEROL [Concomitant]
     Dosage: 30-50% SOLN, PRN 1 X PER APHTHOUS ULCER
  10. LIDOCAINE HCL [Concomitant]
     Dosage: UNK, PRN
  11. HYDROCHLOROTHIAZIDE [Concomitant]
     Dosage: 25 MG, QD
  12. WELLBUTRIN XL [Concomitant]
     Dosage: 150 MG, QD
  13. PROZAC [Concomitant]
     Dosage: 20 MG, QD
  14. TRAZODONE HCL [Concomitant]
     Dosage: 50 MG, QD

REACTIONS (17)
  - Lethargy [Unknown]
  - Epistaxis [Not Recovered/Not Resolved]
  - Fatigue [Not Recovered/Not Resolved]
  - Platelet count decreased [Not Recovered/Not Resolved]
  - Anaemia [Unknown]
  - Dry mouth [Not Recovered/Not Resolved]
  - Weight increased [Not Recovered/Not Resolved]
  - Dyspnoea exertional [Not Recovered/Not Resolved]
  - Cheilitis [Not Recovered/Not Resolved]
  - Sinus disorder [Not Recovered/Not Resolved]
  - Nasopharyngitis [Not Recovered/Not Resolved]
  - Headache [Unknown]
  - Arthralgia [Unknown]
  - Muscular weakness [Unknown]
  - Myalgia [Unknown]
  - White blood cell count decreased [Not Recovered/Not Resolved]
  - Nausea [Unknown]
